FAERS Safety Report 13263610 (Version 1)
Quarter: 2017Q1

REPORT INFORMATION
  Report Type: Spontaneous
  Country: US (occurrence: US)
  Receive Date: 20170221
  Receipt Date: 20170221
  Transmission Date: 20170428
  Serious: Yes (Disabling, Other)
  Sender: FDA-Public Use
  Company Number: None

PATIENT
  Age: 56 Year
  Sex: Male
  Weight: 81.9 kg

DRUGS (13)
  1. ALFUZOSIN [Suspect]
     Active Substance: ALFUZOSIN
     Indication: BENIGN PROSTATIC HYPERPLASIA
     Dosage: ?          QUANTITY:2 TABLET(S);?
     Route: 048
     Dates: start: 20170220, end: 20170220
  2. ALPRAZOLAM. [Concomitant]
     Active Substance: ALPRAZOLAM
  3. CIALIS [Concomitant]
     Active Substance: TADALAFIL
  4. AMLODIPINE [Concomitant]
     Active Substance: AMLODIPINE BESYLATE
  5. CABERGOLINE. [Concomitant]
     Active Substance: CABERGOLINE
  6. SAW PALMETTO [Concomitant]
     Active Substance: SAW PALMETTO
  7. LYSINE [Concomitant]
     Active Substance: LYSINE
  8. BUPROPION XL [Concomitant]
     Active Substance: BUPROPION
  9. NORTRIPTYLINE [Concomitant]
     Active Substance: NORTRIPTYLINE
  10. CENTRUM SILVER FOR MEN [Concomitant]
  11. VITAMIN D [Concomitant]
     Active Substance: CHOLECALCIFEROL
  12. ROPINEROLE [Concomitant]
     Active Substance: ROPINIROLE
  13. FISH OIL [Concomitant]
     Active Substance: FISH OIL

REACTIONS (3)
  - Product substitution issue [None]
  - Malaise [None]
  - Blood pressure decreased [None]

NARRATIVE: CASE EVENT DATE: 20170220
